FAERS Safety Report 7271796-9 (Version None)
Quarter: 2011Q1

REPORT INFORMATION
  Report Type: 
  Country: None (occurrence: None)
  Receive Date: 20110131
  Receipt Date: 20110131
  Transmission Date: 20110831
  Serious: Yes (Hospitalization)
  Sender: FDA-Public Use
  Company Number: None

PATIENT
  Sex: Female
  Weight: 99.1 kg

DRUGS (1)
  1. AVASTIN [Suspect]
     Indication: BRAIN STEM GLIOMA
     Dosage: 10 MG/KG EVERY 2 WEEKS IV DRIP
     Route: 041
     Dates: start: 20100501, end: 20101215

REACTIONS (6)
  - SOFT TISSUE DISORDER [None]
  - SERRATIA INFECTION [None]
  - WOUND INFECTION BACTERIAL [None]
  - SKIN STRIAE [None]
  - CELLULITIS [None]
  - BONE INFARCTION [None]
